FAERS Safety Report 10247968 (Version 1)
Quarter: 2014Q2

REPORT INFORMATION
  Report Type: Spontaneous
  Country: US (occurrence: US)
  Receive Date: 20140619
  Receipt Date: 20140619
  Transmission Date: 20141212
  Serious: No
  Sender: FDA-Public Use
  Company Number: US-B.I. PHARMACEUTICALS,INC./RIDGEFIELD-2014-BI-26466BP

PATIENT
  Age: 74 Year
  Sex: Female
  Weight: 73 kg

DRUGS (14)
  1. SPIRIVA [Suspect]
     Indication: CHRONIC OBSTRUCTIVE PULMONARY DISEASE
     Dosage: 18 MCG
     Route: 055
     Dates: start: 20140528
  2. FLOVENT [Concomitant]
     Indication: CHRONIC OBSTRUCTIVE PULMONARY DISEASE
     Dosage: 220 MCG
     Route: 055
     Dates: start: 201211
  3. PROAIR [Concomitant]
     Indication: CHRONIC OBSTRUCTIVE PULMONARY DISEASE
     Dosage: FORMULATION: INHALATION AEROSOL
     Route: 045
  4. ARMOUR THYROID [Concomitant]
     Indication: HYPOTHYROIDISM
     Dosage: 60 MCG
     Route: 048
     Dates: start: 1984
  5. CRESTOR [Concomitant]
     Indication: BLOOD CHOLESTEROL INCREASED
     Dosage: 10 MG
     Route: 048
     Dates: start: 2013
  6. LYRICA [Concomitant]
     Indication: FIBROMYALGIA
     Dosage: 300 MG
     Route: 048
     Dates: start: 1996
  7. CYCLOBENZAPRINE [Concomitant]
     Indication: FIBROMYALGIA
     Dosage: 10 MG
     Route: 048
     Dates: start: 1996
  8. LISINOPRIL/HCTZ [Concomitant]
     Indication: HYPERTENSION
     Dosage: 10 MG
     Route: 048
     Dates: start: 2013
  9. TRAMADOL [Concomitant]
     Indication: FIBROMYALGIA
     Dosage: 100 MG
     Route: 048
     Dates: start: 2006
  10. ELAVIL [Concomitant]
     Indication: FIBROMYALGIA
     Dosage: 10 MG
     Route: 048
     Dates: start: 201405
  11. EVISTA [Concomitant]
     Indication: OSTEOPOROSIS
     Dosage: 60 MG
     Route: 048
     Dates: start: 2013
  12. OMEPRAZOLE [Concomitant]
     Indication: GASTROOESOPHAGEAL REFLUX DISEASE
     Dosage: 20 MG
     Route: 048
  13. CALCIUM [Concomitant]
     Indication: MINERAL SUPPLEMENTATION
     Dosage: 1200 MG
     Route: 048
  14. VITAMIN D [Concomitant]
     Indication: VITAMIN D DECREASED
     Dosage: 4000 MG
     Route: 048
     Dates: start: 2013

REACTIONS (2)
  - Dysphonia [Not Recovered/Not Resolved]
  - Drug ineffective [Not Recovered/Not Resolved]
